FAERS Safety Report 4388641-1 (Version None)
Quarter: 2004Q2

REPORT INFORMATION
  Report Type: 
  Country: None (occurrence: None)
  Receive Date: 20040624
  Receipt Date: 20040608
  Transmission Date: 20050107
  Serious: Yes (Other)
  Sender: FDA-Public Use
  Company Number: 193569

PATIENT
  Age: 55 Year
  Sex: Female
  Weight: 63.5036 kg

DRUGS (5)
  1. AVONEX [Suspect]
     Indication: MULTIPLE SCLEROSIS
     Dosage: 30 MCG QW IM
     Route: 030
     Dates: start: 20031021, end: 20040225
  2. ACIPHEX [Concomitant]
  3. PROZAC [Concomitant]
  4. INDERAL LA [Concomitant]
  5. IV STEROIDS [Concomitant]

REACTIONS (9)
  - BAND NEUTROPHIL COUNT INCREASED [None]
  - BLOOD ALBUMIN DECREASED [None]
  - FATIGUE [None]
  - HEPATITIS [None]
  - LYMPHOCYTE PERCENTAGE DECREASED [None]
  - MONOCYTE PERCENTAGE INCREASED [None]
  - NEUTROPHIL PERCENTAGE INCREASED [None]
  - PROTEIN TOTAL DECREASED [None]
  - PRURITUS [None]
